FAERS Safety Report 9242925 (Version 3)
Quarter: 2013Q3

REPORT INFORMATION
  Report Type: Spontaneous
  Country: FR (occurrence: FR)
  Receive Date: 20130419
  Receipt Date: 20130816
  Transmission Date: 20140515
  Serious: Yes (Hospitalization)
  Sender: FDA-Public Use
  Company Number: FR-ASTRAZENECA-2013SE24362

PATIENT
  Age: 602 Month
  Sex: Male

DRUGS (15)
  1. INEXIUM [Suspect]
     Route: 048
     Dates: start: 20120903, end: 20130122
  2. INEXIUM [Suspect]
     Route: 048
     Dates: start: 20130123, end: 20130205
  3. INEXIUM [Suspect]
     Route: 048
     Dates: start: 20130216, end: 20130221
  4. MOPRAL [Suspect]
     Route: 048
     Dates: start: 20120816, end: 20120902
  5. AMLOR [Suspect]
     Route: 048
     Dates: end: 20130204
  6. CALCIDIA [Suspect]
     Route: 048
     Dates: start: 20120817, end: 20120908
  7. OROCAL [Suspect]
     Route: 048
     Dates: start: 20120909, end: 20130214
  8. LASILIX [Suspect]
     Route: 048
     Dates: end: 20120904
  9. SOLUPRED [Suspect]
     Route: 048
     Dates: start: 20120818, end: 20130205
  10. RENAGEL [Suspect]
     Route: 048
     Dates: start: 20120817, end: 20130204
  11. ADVAGRAF SR [Concomitant]
  12. DETENSIEL [Concomitant]
  13. BISOCE [Concomitant]
  14. ASPEGIC [Concomitant]
  15. KARDEGIC [Concomitant]

REACTIONS (4)
  - Sepsis [Unknown]
  - Enterococcal sepsis [Unknown]
  - Cholestasis [Recovering/Resolving]
  - Jaundice [Recovered/Resolved]
